FAERS Safety Report 22596672 (Version 1)
Quarter: 2023Q2

REPORT INFORMATION
  Report Type: Report from Study
  Country: US (occurrence: US)
  Receive Date: 20230613
  Receipt Date: 20230613
  Transmission Date: 20230721
  Serious: Yes (Life-Threatening, Hospitalization)
  Sender: FDA-Public Use
  Company Number: US-APIL-2313468US

PATIENT
  Age: 80 Year
  Sex: Male
  Weight: 81.646 kg

DRUGS (3)
  1. LINZESS [Suspect]
     Active Substance: LINACLOTIDE
     Indication: Irritable bowel syndrome
     Dosage: DAILY DOSE: 290.0 ?G?FORM STRENGTH: 290 MICROGRAM
     Route: 048
     Dates: start: 20221108
  2. LASIX [Concomitant]
     Active Substance: FUROSEMIDE
     Indication: Anticoagulant therapy
  3. XANAX [Concomitant]
     Active Substance: ALPRAZOLAM
     Indication: Hypertension
     Dosage: DOSE DESC: UNK
     Route: 065

REACTIONS (9)
  - Fatigue [Not Recovered/Not Resolved]
  - Asthenia [Not Recovered/Not Resolved]
  - Road traffic accident [Recovered/Resolved]
  - Dehydration [Recovered/Resolved]
  - Wrong technique in product usage process [Unknown]
  - Syncope [Unknown]
  - Diarrhoea [Not Recovered/Not Resolved]
  - Product dispensing error [Unknown]
  - Drug ineffective [Unknown]

NARRATIVE: CASE EVENT DATE: 20230319
